FAERS Safety Report 20829437 (Version 1)
Quarter: 2022Q2

REPORT INFORMATION
  Report Type: Spontaneous
  Country: US (occurrence: US)
  Receive Date: 20220513
  Receipt Date: 20220513
  Transmission Date: 20220721
  Serious: No
  Sender: FDA-Public Use
  Company Number: US-SA-SAC20220512000057

PATIENT
  Age: 43 Year
  Sex: Female

DRUGS (5)
  1. DUPIXENT [Suspect]
     Active Substance: DUPILUMAB
     Indication: Dermatitis atopic
     Dosage: 300 MG, QOW
     Route: 058
     Dates: start: 202101
  2. ORILISSA [Concomitant]
     Active Substance: ELAGOLIX SODIUM
  3. ZINC [Concomitant]
     Active Substance: ZINC
  4. VITAMIN D2 [Concomitant]
     Active Substance: ERGOCALCIFEROL
  5. ASCORBIC ACID [Concomitant]
     Active Substance: ASCORBIC ACID

REACTIONS (3)
  - COVID-19 [Unknown]
  - Cough [Unknown]
  - Mental fatigue [Unknown]
